FAERS Safety Report 12901418 (Version 2)
Quarter: 2016Q4

REPORT INFORMATION
  Report Type: Spontaneous
  Country: FR (occurrence: FR)
  Receive Date: 20161101
  Receipt Date: 20161130
  Transmission Date: 20170207
  Serious: Yes (Hospitalization)
  Sender: FDA-Public Use
  Company Number: FR-BAXTER-2016BAX055253

PATIENT
  Age: 56 Year
  Sex: Female

DRUGS (5)
  1. ENDOXAN 1000 MG, POUDRE POUR SOLUTION INJECTABLE [Suspect]
     Active Substance: CYCLOPHOSPHAMIDE
     Indication: BREAST CANCER
     Route: 065
  2. ENDOXAN 1000 MG, POUDRE POUR SOLUTION INJECTABLE [Suspect]
     Active Substance: CYCLOPHOSPHAMIDE
     Dosage: IV INFUSION VIA PORT A CATH
     Route: 042
     Dates: start: 20161021, end: 20161021
  3. HERCEPTIN [Suspect]
     Active Substance: TRASTUZUMAB
     Indication: BREAST CANCER
     Dosage: IV INFUSION VIA PORT A CATH
     Route: 042
     Dates: start: 20161021, end: 20161021
  4. CHLORURE DE SODIUM [Suspect]
     Active Substance: SODIUM CHLORIDE
     Indication: CATHETER MANAGEMENT
     Dosage: VIA PORT A CATH, FRESENIUS FREEFLEX (SALINE SOLUTION)
     Route: 042
     Dates: start: 20161021, end: 20161021
  5. TAXOTERE [Suspect]
     Active Substance: DOCETAXEL
     Indication: BREAST CANCER
     Dosage: IV INFUSION VIA PORT A CATH
     Route: 042
     Dates: start: 20161021, end: 20161021

REACTIONS (1)
  - Extravasation [Recovered/Resolved]

NARRATIVE: CASE EVENT DATE: 20161021
